FAERS Safety Report 11131940 (Version 1)
Quarter: 2015Q2

REPORT INFORMATION
  Report Type: Report from Study
  Country: FR (occurrence: FR)
  Receive Date: 20150522
  Receipt Date: 20150522
  Transmission Date: 20150821
  Serious: Yes (Hospitalization)
  Sender: FDA-Public Use
  Company Number: FR-GLAXOSMITHKLINE-FR2015GSK070451

PATIENT
  Age: 60 Year
  Sex: Male

DRUGS (8)
  1. OMEGA-3-ACID ETHYL ESTERS. [Suspect]
     Active Substance: OMEGA-3-ACID ETHYL ESTERS
     Indication: ISCHAEMIC HEART DISEASE PROPHYLAXIS
     Dosage: UNK
     Dates: start: 20090518, end: 20101118
  2. INSPRA [Concomitant]
     Active Substance: EPLERENONE
  3. APROVEL [Concomitant]
     Active Substance: IRBESARTAN
  4. CRESTOR [Concomitant]
     Active Substance: ROSUVASTATIN CALCIUM
  5. PLAVIX [Concomitant]
     Active Substance: CLOPIDOGREL BISULFATE
  6. ASPEGIC [Concomitant]
     Active Substance: ASPIRIN DL-LYSINE
  7. SELOKEN [Concomitant]
     Active Substance: METOPROLOL
  8. KARDEGIC [Concomitant]
     Active Substance: ASPIRIN LYSINE

REACTIONS (1)
  - Hernia [Unknown]

NARRATIVE: CASE EVENT DATE: 20110411
